FAERS Safety Report 6940747-6 (Version None)
Quarter: 2010Q3

REPORT INFORMATION
  Report Type: 
  Country: None (occurrence: None)
  Receive Date: 20100825
  Receipt Date: 20100820
  Transmission Date: 20110219
  Serious: Yes (Other)
  Sender: FDA-Public Use
  Company Number: BR-ROCHE-722696

PATIENT
  Sex: Female
  Weight: 90 kg

DRUGS (2)
  1. RIVOTRIL [Suspect]
     Indication: DEPRESSION
     Dosage: DOSE: 2.5 MG/ML
     Route: 048
     Dates: start: 20091101
  2. PONDERA [Concomitant]
     Indication: DEPRESSION
     Route: 048
     Dates: start: 20091101

REACTIONS (3)
  - TOOTH DISORDER [None]
  - TOOTH FRACTURE [None]
  - UTERINE LEIOMYOMA [None]
